FAERS Safety Report 8024311-6 (Version None)
Quarter: 2012Q1

REPORT INFORMATION
  Report Type: 
  Country: None (occurrence: None)
  Receive Date: 20120103
  Receipt Date: 20111221
  Transmission Date: 20120608
  Serious: Yes (Other)
  Sender: FDA-Public Use
  Company Number: 2011SP059648

PATIENT
  Age: 54 Year
  Sex: Male
  Weight: 68.4932 kg

DRUGS (3)
  1. VICTRELIS [Suspect]
     Indication: HEPATITIS C
     Dosage: 800 MG, TID, PO
     Route: 048
     Dates: start: 20111101
  2. INTERFERON ALFA [Suspect]
     Indication: HEPATITIS
  3. RIBAVIRIN [Suspect]
     Indication: HEPATITIS

REACTIONS (10)
  - WEIGHT INCREASED [None]
  - HEADACHE [None]
  - COUGH [None]
  - HOMICIDAL IDEATION [None]
  - NAUSEA [None]
  - ASTHENIA [None]
  - FATIGUE [None]
  - THIRST [None]
  - IMPATIENCE [None]
  - SELF-INJURIOUS IDEATION [None]
